FAERS Safety Report 6996531-0 (Version None)
Quarter: 2010Q3

REPORT INFORMATION
  Report Type: 
  Country: None (occurrence: None)
  Receive Date: 20100918
  Receipt Date: 20091005
  Transmission Date: 20110219
  Serious: No
  Sender: FDA-Public Use
  Company Number: US-WYE-H08952509

PATIENT
  Sex: Female

DRUGS (10)
  1. EFFEXOR XR [Suspect]
     Indication: DEPRESSION
     Route: 048
     Dates: end: 20040101
  2. EFFEXOR XR [Suspect]
     Dosage: DOSE INCREASED - UNKNOWN DOSE
     Route: 048
     Dates: start: 20040101
  3. EFFEXOR XR [Suspect]
     Route: 048
     Dates: end: 20090301
  4. EFFEXOR XR [Suspect]
     Dosage: ALTERNATED 150 MG DAILY WITH 187.5 MG DAILY
     Route: 048
     Dates: start: 20090301, end: 20090101
  5. EFFEXOR XR [Suspect]
     Route: 048
     Dates: start: 20090101, end: 20090101
  6. EFFEXOR XR [Suspect]
     Route: 048
     Dates: start: 20090101, end: 20090101
  7. EFFEXOR XR [Suspect]
     Route: 048
     Dates: start: 20090101
  8. FIORICET W/ CODEINE [Concomitant]
  9. SYNTHROID [Concomitant]
  10. IMITREX [Concomitant]

REACTIONS (9)
  - CRYING [None]
  - DRUG EFFECT DECREASED [None]
  - DRUG WITHDRAWAL SYNDROME [None]
  - EYE PAIN [None]
  - FALL [None]
  - HYPOAESTHESIA [None]
  - INFLUENZA LIKE ILLNESS [None]
  - NAUSEA [None]
  - WEIGHT DECREASED [None]
